FAERS Safety Report 5885027-5 (Version None)
Quarter: 2008Q3

REPORT INFORMATION
  Report Type: 
  Country: None (occurrence: None)
  Receive Date: 20080912
  Receipt Date: 20080826
  Transmission Date: 20090109
  Serious: Yes (Hospitalization)
  Sender: FDA-Public Use
  Company Number: PIR# 0808004

PATIENT
  Age: 11 Year
  Sex: Female

DRUGS (1)
  1. CEFOTAXIME INJECTIONS [Suspect]

REACTIONS (9)
  - DRUG RASH WITH EOSINOPHILIA AND SYSTEMIC SYMPTOMS [None]
  - HEPATIC FUNCTION ABNORMAL [None]
  - LYMPHOCYTE STIMULATION TEST POSITIVE [None]
  - NEUTROPENIA [None]
  - OEDEMA [None]
  - PIGMENTATION DISORDER [None]
  - PRURITUS [None]
  - PYREXIA [None]
  - RASH [None]
